FAERS Safety Report 4784531-0 (Version None)
Quarter: 2005Q3

REPORT INFORMATION
  Report Type: 
  Country: None (occurrence: None)
  Receive Date: 20050930
  Receipt Date: 20050924
  Transmission Date: 20060218
  Serious: Yes (Life-Threatening)
  Sender: FDA-Public Use
  Company Number: GB-GLAXOSMITHKLINE-B0394932A

PATIENT
  Age: 76 Year
  Sex: Female

DRUGS (7)
  1. REQUIP [Suspect]
     Indication: PARKINSON'S DISEASE
     Dosage: 250MCG THREE TIMES PER DAY
     Route: 048
     Dates: start: 20050814, end: 20050816
  2. SELEGILINE HCL [Concomitant]
     Indication: PARKINSON'S DISEASE
     Dosage: 5MG PER DAY
     Route: 048
  3. SINEMET CR [Concomitant]
     Indication: PARKINSON'S DISEASE
     Route: 048
  4. ASPIRIN [Concomitant]
     Indication: MYOCARDIAL ISCHAEMIA
     Dosage: 75MG PER DAY
     Route: 048
  5. DILTIAZEM [Concomitant]
     Indication: HYPERTENSION
     Dosage: 90MG TWICE PER DAY
     Route: 048
  6. METFORMIN [Concomitant]
     Dosage: 500MG THREE TIMES PER DAY
     Route: 065
  7. SINEMET [Concomitant]
     Indication: PARKINSON'S DISEASE
     Dosage: 1.5TAB THREE TIMES PER DAY
     Route: 048

REACTIONS (2)
  - SYNCOPE [None]
  - VENTRICULAR FIBRILLATION [None]
